FAERS Safety Report 7374514-9 (Version None)
Quarter: 2011Q1

REPORT INFORMATION
  Report Type: 
  Country: None (occurrence: None)
  Receive Date: 20110325
  Receipt Date: 20100226
  Transmission Date: 20110831
  Serious: No
  Sender: FDA-Public Use
  Company Number: US-MYLANLABS-2010S1001803

PATIENT
  Age: 81 Year
  Sex: Female

DRUGS (2)
  1. FENTANYL-100 [Suspect]
     Indication: MUSCULOSKELETAL PAIN
     Dosage: CHANGES Q3D
     Route: 062
     Dates: start: 20091202
  2. COUMADIN [Suspect]
     Route: 048

REACTIONS (1)
  - EPISTAXIS [None]
